FAERS Safety Report 6269505-5 (Version None)
Quarter: 2009Q3

REPORT INFORMATION
  Report Type: 
  Country: None (occurrence: None)
  Receive Date: 20090714
  Receipt Date: 20090701
  Transmission Date: 20100115
  Serious: No
  Sender: FDA-Public Use
  Company Number: 2009-199820-NL

PATIENT
  Age: 21 Year
  Sex: Female

DRUGS (1)
  1. ETONOGESTREL  (BATCH #: 347441/396922) [Suspect]
     Indication: CONTRACEPTION
     Dosage: DF SUBDERMAL
     Route: 059
     Dates: start: 20090114, end: 20090520

REACTIONS (3)
  - AGGRESSION [None]
  - DEPRESSION [None]
  - MOOD SWINGS [None]
